FAERS Safety Report 23590859 (Version 1)
Quarter: 2024Q1

REPORT INFORMATION
  Report Type: Spontaneous
  Country: SE (occurrence: SE)
  Receive Date: 20240304
  Receipt Date: 20240304
  Transmission Date: 20240409
  Serious: Yes (Hospitalization)
  Sender: FDA-Public Use
  Company Number: SE-AMGEN-SWESP2024041446

PATIENT
  Age: 26 Year
  Sex: Male

DRUGS (7)
  1. FILGRASTIM [Suspect]
     Active Substance: FILGRASTIM
     Indication: Haematopoietic stem cell mobilisation
     Dosage: 5-10 MICROGRAM/KG/DAY OVER 6-7 DAYS
     Route: 065
  2. CYCLOPHOSPHAMIDE [Concomitant]
     Active Substance: CYCLOPHOSPHAMIDE
     Indication: Haematopoietic stem cell mobilisation
     Dosage: 2 GRAM PER SQUARE METRE, OVER 6-7 DAYS
     Route: 065
  3. CARMUSTINE [Concomitant]
     Active Substance: CARMUSTINE
     Indication: Haematopoietic stem cell mobilisation
     Dosage: 300 MILLIGRAM/SQ. METER
     Route: 065
  4. ETOPOSIDE [Concomitant]
     Active Substance: ETOPOSIDE
     Indication: Haematopoietic stem cell mobilisation
     Dosage: 800 MILLIGRAM/SQ. METER
     Route: 065
  5. CYTARABINE [Concomitant]
     Active Substance: CYTARABINE
     Indication: Haematopoietic stem cell mobilisation
     Dosage: 800 MILLIGRAM/SQ. METER
     Route: 065
  6. MELPHALAN [Concomitant]
     Active Substance: MELPHALAN
     Indication: Haematopoietic stem cell mobilisation
     Dosage: 140 MILLIGRAM/SQ. METER
     Route: 065
  7. THYMOCYTE IMMUNE GLOBULIN NOS [Concomitant]
     Active Substance: THYMOCYTE IMMUNE GLOBULIN NOS
     Indication: Haematopoietic stem cell mobilisation
     Dosage: 6 MILLIGRAM/KILOGRAM
     Route: 065

REACTIONS (4)
  - Febrile neutropenia [Recovered/Resolved]
  - Urinary tract infection [Recovered/Resolved]
  - Nausea [Recovered/Resolved]
  - Vomiting [Recovered/Resolved]
